FAERS Safety Report 5640007-X (Version None)
Quarter: 2008Q1

REPORT INFORMATION
  Report Type: 
  Country: None (occurrence: None)
  Receive Date: 20080226
  Receipt Date: 20080226
  Transmission Date: 20080703
  Serious: Yes (Hospitalization)
  Sender: FDA-Public Use
  Company Number: None

PATIENT
  Age: 80 Year
  Sex: Male
  Weight: 57.1532 kg

DRUGS (1)
  1. LAPATINIB [Suspect]
     Indication: PANCREATIC CARCINOMA
     Dosage: 1500MG DAILY ORAL
     Route: 048
     Dates: start: 20071203, end: 20080118

REACTIONS (8)
  - ABDOMINAL DISCOMFORT [None]
  - BLOOD ALKALINE PHOSPHATASE INCREASED [None]
  - BLOOD BILIRUBIN INCREASED [None]
  - CONSTIPATION [None]
  - DEEP VEIN THROMBOSIS [None]
  - DISEASE PROGRESSION [None]
  - DIZZINESS [None]
  - LUNG NEOPLASM [None]
